FAERS Safety Report 5071303-5 (Version None)
Quarter: 2006Q3

REPORT INFORMATION
  Report Type: 
  Country: None (occurrence: None)
  Receive Date: 20060804
  Receipt Date: 20060717
  Transmission Date: 20061208
  Serious: Yes (Hospitalization)
  Sender: FDA-Public Use
  Company Number: US-ROCHE-455956

PATIENT
  Age: 70 Year
  Sex: Female
  Weight: 115.2 kg

DRUGS (3)
  1. CAPECITABINE [Suspect]
     Dosage: FREQUENCY AS PER PROTOCOL - ON DAYS 1-8 EVERY 2 WEEKS DATE OF LAST DOSE PRIOR TO SAE: 10 JULY 2006 +
     Route: 048
     Dates: start: 20060703, end: 20060710
  2. OXALIPLATIN [Suspect]
     Dosage: DATE OF LAST DOSE PRIOR TO SAE: 03 JULY 2006 THERAPY TEMPORARILY INTERRUPTED DUE TO THE EVENT
     Route: 042
     Dates: start: 20060703, end: 20060703
  3. AVASTIN [Suspect]
     Dosage: DOSAGE FORM: INFUSION DATE OF LAST DOSE PRIOR TO SAE: 03 JULY 2006 THERAPY TEMPORARILY INTERRUPTED +
     Route: 042
     Dates: start: 20060703, end: 20060703

REACTIONS (1)
  - INFLAMMATORY BOWEL DISEASE [None]
